FAERS Safety Report 16397954 (Version 1)
Quarter: 2019Q3

REPORT INFORMATION
  Report Type: Spontaneous
  Country: US (occurrence: US)
  Receive Date: 20190605
  Receipt Date: 20190605
  Transmission Date: 20191004
  Serious: Yes (Other)
  Sender: FDA-Public Use
  Company Number: None

PATIENT
  Age: 58 Year
  Sex: Male
  Weight: 74.25 kg

DRUGS (14)
  1. FENOFIBRATE. [Concomitant]
     Active Substance: FENOFIBRATE
  2. ATORVOSTATIN [Concomitant]
     Active Substance: ATORVASTATIN
  3. METOPROLOL. [Concomitant]
     Active Substance: METOPROLOL
  4. XANAX [Concomitant]
     Active Substance: ALPRAZOLAM
  5. LIALDA [Concomitant]
     Active Substance: MESALAMINE
  6. LAMOTRIGINE. [Concomitant]
     Active Substance: LAMOTRIGINE
  7. VITAMIN D [Concomitant]
     Active Substance: VITAMIN D NOS
  8. ZANTAC [Concomitant]
     Active Substance: RANITIDINE HYDROCHLORIDE
  9. MERCAPTOPURINE. [Concomitant]
     Active Substance: MERCAPTOPURINE
  10. METHADONE [Concomitant]
     Active Substance: METHADONE HYDROCHLORIDE
  11. VITAMIN C [Concomitant]
     Active Substance: ASCORBIC ACID
  12. CHANTIX [Suspect]
     Active Substance: VARENICLINE TARTRATE
     Indication: SMOKING CESSATION THERAPY
     Dosage: ?          QUANTITY:1 TABLET(S);?
     Route: 048
     Dates: start: 20190518, end: 20190604
  13. BABY ASPIRIN [Concomitant]
     Active Substance: ASPIRIN
  14. FISH OIL CAPSULE [Concomitant]

REACTIONS (3)
  - Crying [None]
  - Depression [None]
  - Suicidal ideation [None]

NARRATIVE: CASE EVENT DATE: 20190604
